FAERS Safety Report 24445309 (Version 1)
Quarter: 2024Q4

REPORT INFORMATION
  Report Type: Spontaneous
  Country: ES (occurrence: ES)
  Receive Date: 20241016
  Receipt Date: 20241016
  Transmission Date: 20250115
  Serious: Yes (Other)
  Sender: JOHNSON AND JOHNSON
  Company Number: ES-BAYER-2024A145200

PATIENT
  Age: 85 Year
  Sex: Female

DRUGS (1)
  1. RIVAROXABAN [Suspect]
     Active Substance: RIVAROXABAN
     Indication: Atrial fibrillation
     Dosage: 15 MG
     Route: 048

REACTIONS (5)
  - Accident [Unknown]
  - Haemorrhage [Unknown]
  - Thrombosis [Not Recovered/Not Resolved]
  - Ear discomfort [Unknown]
  - Ear injury [Unknown]
